FAERS Safety Report 23859514 (Version 1)
Quarter: 2024Q2

REPORT INFORMATION
  Report Type: Spontaneous
  Country: US (occurrence: None)
  Receive Date: 20240515
  Receipt Date: 20240515
  Transmission Date: 20240716
  Serious: Yes (Other)
  Sender: FDA-Public Use
  Company Number: None

PATIENT
  Age: 72 Year
  Sex: Female

DRUGS (1)
  1. VIVJOA [Suspect]
     Active Substance: OTESECONAZOLE
     Indication: Product used for unknown indication
     Route: 048

REACTIONS (1)
  - Cystoscopy [None]

NARRATIVE: CASE EVENT DATE: 20240514
